FAERS Safety Report 19987781 (Version 1)
Quarter: 2021Q4

REPORT INFORMATION
  Report Type: Spontaneous
  Country: GB (occurrence: GB)
  Receive Date: 20211022
  Receipt Date: 20211022
  Transmission Date: 20220303
  Serious: Yes (Other)
  Sender: FDA-Public Use
  Company Number: None

PATIENT
  Age: 61 Year
  Sex: Female
  Weight: 113 kg

DRUGS (7)
  1. OXALIPLATIN [Suspect]
     Active Substance: OXALIPLATIN
     Indication: Colon cancer
     Dosage: 135 MG
     Route: 042
     Dates: start: 20210415, end: 20210415
  2. 5 FLUOROURACIL BIOSYN [Concomitant]
     Indication: Ill-defined disorder
     Dosage: UNK
  3. PANITUMUMAB [Concomitant]
     Active Substance: PANITUMUMAB
     Indication: Ill-defined disorder
     Dosage: UNK
  4. LOSARTAN [Concomitant]
     Active Substance: LOSARTAN
     Dosage: UNK
  5. CODEINE [Concomitant]
     Active Substance: CODEINE
     Dosage: UNK
  6. ACETAMINOPHEN [Concomitant]
     Active Substance: ACETAMINOPHEN
     Dosage: UNK
  7. BISACODYL [Concomitant]
     Active Substance: BISACODYL
     Dosage: UNK

REACTIONS (2)
  - Urticaria [Recovered/Resolved]
  - Palmar erythema [Recovered/Resolved]

NARRATIVE: CASE EVENT DATE: 20210415
